FAERS Safety Report 21217129 (Version 1)
Quarter: 2022Q3

REPORT INFORMATION
  Report Type: Spontaneous
  Country: US (occurrence: None)
  Receive Date: 20220816
  Receipt Date: 20220816
  Transmission Date: 20221027
  Serious: No
  Sender: FDA-Public Use
  Company Number: US-ROCHE-3070054

PATIENT
  Sex: Female

DRUGS (1)
  1. ALECENSA [Suspect]
     Active Substance: ALECTINIB HYDROCHLORIDE
     Indication: Lung neoplasm malignant
     Dosage: BY MOUTH
     Route: 048
     Dates: start: 20211012

REACTIONS (9)
  - Red blood cell count decreased [Unknown]
  - Haemoglobin decreased [Unknown]
  - Haematocrit decreased [Unknown]
  - Lip discolouration [Unknown]
  - Chromaturia [Unknown]
  - Dizziness [Unknown]
  - Confusional state [Unknown]
  - Yellow skin [Unknown]
  - Ocular icterus [Unknown]
